FAERS Safety Report 6644382-9 (Version None)
Quarter: 2010Q1

REPORT INFORMATION
  Report Type: 
  Country: None (occurrence: None)
  Receive Date: 20100304
  Receipt Date: 20100313
  Transmission Date: 20100710
  Serious: Yes (Hospitalization)
  Sender: FDA-Public Use
  Company Number: US-002615

PATIENT
  Age: 69 Year
  Sex: Female

DRUGS (8)
  1. ISOVUE-300 [Suspect]
     Indication: ABDOMINAL PAIN
     Dosage: 100ML QD INTRAVENOUS (NOT OTHERWISE SPECIFIED)
     Dates: start: 20090226, end: 20090226
  2. ISOVUE-300 [Suspect]
     Indication: COMPUTERISED TOMOGRAM
     Dosage: 100ML QD INTRAVENOUS (NOT OTHERWISE SPECIFIED)
     Dates: start: 20090226, end: 20090226
  3. PREDNISONE TAB [Concomitant]
  4. XANAX [Concomitant]
  5. LANTUS [Concomitant]
  6. VITAMIN D [Concomitant]
  7. NOVOLOG [Concomitant]
  8. TOPROL-XL [Concomitant]

REACTIONS (1)
  - ANAPHYLACTIC REACTION [None]
